FAERS Safety Report 14514511 (Version 2)
Quarter: 2018Q1

REPORT INFORMATION
  Report Type: Other
  Country: None (occurrence: MX)
  Receive Date: 20180209
  Receipt Date: 20180305
  Transmission Date: 20180509
  Serious: Yes (Other)
  Sender: FDA-Public Use
  Company Number: MX-MEDAC PHARMA, INC.-2041717

PATIENT
  Age: 57 Year
  Sex: Female

DRUGS (9)
  1. CALCIUM [Concomitant]
     Active Substance: CALCIUM
  2. ACETAMINOPHEN. [Concomitant]
     Active Substance: ACETAMINOPHEN
  3. METHOCARBAMOL. [Concomitant]
     Active Substance: METHOCARBAMOL
  4. METHOTREXATE. [Suspect]
     Active Substance: METHOTREXATE
     Indication: JUVENILE IDIOPATHIC ARTHRITIS
     Dates: start: 199001, end: 201709
  5. PREDNISONE. [Concomitant]
     Active Substance: PREDNISONE
  6. FOLIC ACID. [Concomitant]
     Active Substance: FOLIC ACID
  7. MELOXICAM. [Concomitant]
     Active Substance: MELOXICAM
  8. KETOROLAC [Concomitant]
     Active Substance: KETOROLAC\KETOROLAC TROMETHAMINE
  9. OMEPRAZOLE. [Concomitant]
     Active Substance: OMEPRAZOLE

REACTIONS (8)
  - Malnutrition [Recovered/Resolved]
  - White blood cell count decreased [Recovered/Resolved]
  - Mucosal inflammation [Recovered/Resolved]
  - Lymphocyte count decreased [Recovered/Resolved]
  - Vitamin B12 abnormal [Recovered/Resolved]
  - Hepatic function abnormal [Recovered/Resolved]
  - Mucosal atrophy [Recovered/Resolved]
  - Oral candidiasis [Recovered/Resolved]

NARRATIVE: CASE EVENT DATE: 2016
